FAERS Safety Report 14966627 (Version 1)
Quarter: 2018Q2

REPORT INFORMATION
  Report Type: Spontaneous
  Country: FR (occurrence: FR)
  Receive Date: 20180604
  Receipt Date: 20180604
  Transmission Date: 20180711
  Serious: Yes (Hospitalization)
  Sender: FDA-Public Use
  Company Number: FR-TEVA-2018-FR-901174

PATIENT
  Age: 56 Year
  Sex: Male
  Weight: 89 kg

DRUGS (6)
  1. TAVANIC 500 MG, COMPRIM? PELLICUL? S?CABLE [Concomitant]
     Active Substance: LEVOFLOXACIN
     Dosage: 1.5 DOSAGE FORMS DAILY;
     Route: 048
     Dates: start: 20180122
  2. RIFAMPICINE [Suspect]
     Active Substance: RIFAMPIN
     Indication: INFECTION
     Dosage: 1200 MILLIGRAM DAILY;
     Route: 048
     Dates: start: 20180115, end: 20180126
  3. AMIKACINE [Suspect]
     Active Substance: AMIKACIN
     Indication: INFECTION
     Route: 042
     Dates: start: 20180107
  4. VANCOMYCIN [Suspect]
     Active Substance: VANCOMYCIN
     Indication: INFECTION
     Route: 042
     Dates: start: 20180107, end: 20180122
  5. TAZOCILLINE [Suspect]
     Active Substance: PIPERACILLIN SODIUM\TAZOBACTAM SODIUM
     Dosage: 16 GRAM DAILY;
     Route: 042
     Dates: start: 20180107, end: 20180122
  6. LEVOTHYROX 150 MICROGRAMMES, COMPRIM? S?CABLE [Concomitant]
     Dosage: 1 DOSAGE FORMS DAILY;
     Route: 048

REACTIONS (1)
  - Rash maculo-papular [Recovering/Resolving]

NARRATIVE: CASE EVENT DATE: 20180126
